FAERS Safety Report 15240027 (Version 3)
Quarter: 2018Q3

REPORT INFORMATION
  Report Type: Spontaneous
  Country: RU (occurrence: RU)
  Receive Date: 20180803
  Receipt Date: 20180820
  Transmission Date: 20181010
  Serious: Yes (Hospitalization, Other)
  Sender: FDA-Public Use
  Company Number: RU-009507513-1808RUS000608

PATIENT
  Age: 6 Year
  Sex: Male

DRUGS (3)
  1. ISOPROTERENOL. [Concomitant]
     Active Substance: ISOPROTERENOL
     Dosage: UNK
  2. SINGULAIR [Suspect]
     Active Substance: MONTELUKAST SODIUM
     Indication: ASTHMA
     Dosage: 5MG, 1 TABLET BEFORE BED
     Route: 048
  3. DESLORATADINE. [Suspect]
     Active Substance: DESLORATADINE
     Indication: ANTIALLERGIC THERAPY
     Dosage: UNK

REACTIONS (5)
  - Epistaxis [Recovered/Resolved]
  - Renal haemorrhage [Recovered/Resolved]
  - Thrombocytopenic purpura [Recovered/Resolved]
  - Rhinitis allergic [Unknown]
  - Platelet count decreased [Not Recovered/Not Resolved]
